FAERS Safety Report 9655512 (Version 2)
Quarter: 2014Q1

REPORT INFORMATION
  Report Type: Spontaneous
  Country: US (occurrence: US)
  Receive Date: 20131029
  Receipt Date: 20140121
  Transmission Date: 20141002
  Serious: Yes (Other)
  Sender: FDA-Public Use
  Company Number: US-RB-059942-13

PATIENT
  Sex: Female

DRUGS (4)
  1. SUBUTEX [Suspect]
     Indication: DRUG DEPENDENCE
     Dosage: CUTTING IN HALF AND TAKING A HALF OF TABLET 4 TIMES DAILY
     Route: 060
     Dates: start: 2012
  2. NICOTINE [Suspect]
     Indication: PRODUCT USED FOR UNKNOWN INDICATION
     Dosage: UNKNOWN DOSING DETAILS; QUIT IN SECOND TRIMESTER.
     Route: 055
     Dates: end: 2013
  3. CLONIDINE [Suspect]
     Indication: ANXIETY
     Dosage: UNKNOWN DOSE
     Route: 048
  4. KLONOPIN [Suspect]
     Indication: ANXIETY
     Route: 048

REACTIONS (5)
  - Subchorionic haemorrhage [Recovered/Resolved]
  - Extra dose administered [Not Recovered/Not Resolved]
  - Drug withdrawal syndrome [Recovered/Resolved]
  - Wrong technique in drug usage process [Not Recovered/Not Resolved]
  - Maternal exposure during pregnancy [Recovered/Resolved]
